FAERS Safety Report 14549309 (Version 1)
Quarter: 2018Q1

REPORT INFORMATION
  Report Type: Spontaneous
  Country: US (occurrence: GB)
  Receive Date: 20180219
  Receipt Date: 20180219
  Transmission Date: 20180509
  Serious: Yes (Other)
  Sender: FDA-Public Use
  Company Number: US-SUNOVION-2018SUN000608

PATIENT

DRUGS (1)
  1. GLYCOPYRROLATE. [Suspect]
     Active Substance: GLYCOPYRROLATE
     Indication: CHRONIC OBSTRUCTIVE PULMONARY DISEASE
     Dosage: 44 ?G, UNK
     Route: 055
     Dates: start: 20171220, end: 20171221

REACTIONS (2)
  - Tachycardia [Recovering/Resolving]
  - Bronchospasm paradoxical [Recovering/Resolving]

NARRATIVE: CASE EVENT DATE: 20171220
